FAERS Safety Report 8347981-1 (Version None)
Quarter: 2012Q2

REPORT INFORMATION
  Report Type: 
  Country: None (occurrence: None)
  Receive Date: 20120509
  Receipt Date: 20120427
  Transmission Date: 20120825
  Serious: No
  Sender: FDA-Public Use
  Company Number: US-BAYER-2012-043904

PATIENT
  Sex: Female

DRUGS (1)
  1. NAPROXEN (ALEVE) [Suspect]
     Indication: ANALGESIC THERAPY
     Dosage: 2 U, BID
     Route: 048
     Dates: start: 20120422, end: 20120426

REACTIONS (1)
  - DYSGEUSIA [None]
